FAERS Safety Report 8958665 (Version 1)
Quarter: 2012Q4

REPORT INFORMATION
  Report Type: Spontaneous
  Country: US (occurrence: None)
  Receive Date: 20121206
  Receipt Date: 20121206
  Transmission Date: 20130627
  Serious: Yes (Other)
  Sender: FDA-Public Use
  Company Number: None

PATIENT
  Age: 79 Year
  Sex: Female
  Weight: 49.9 kg

DRUGS (1)
  1. ENTERIC ASPIRIN [Suspect]
     Indication: CEREBROVASCULAR ACCIDENT PROPHYLAXIS
     Dosage: 81 mg  daily  po
     Route: 048
     Dates: start: 20120821, end: 20121018

REACTIONS (1)
  - Blood creatinine increased [None]
